FAERS Safety Report 7480462-6 (Version None)
Quarter: 2011Q2

REPORT INFORMATION
  Report Type: 
  Country: None (occurrence: None)
  Receive Date: 20110516
  Receipt Date: 20110504
  Transmission Date: 20111010
  Serious: Yes (Other)
  Sender: FDA-Public Use
  Company Number: US-EISAI INC-E7389-00929-CLI-US

PATIENT
  Sex: Female
  Weight: 81.2 kg

DRUGS (9)
  1. LIPITOR [Concomitant]
     Route: 048
     Dates: start: 20050101
  2. GLIPIZIDE [Concomitant]
     Route: 048
     Dates: start: 20090101
  3. EPIRUBICIN HYDROCHLORIDE [Suspect]
     Indication: NON-SMALL CELL LUNG CANCER
     Route: 041
     Dates: start: 20100303, end: 20100407
  4. ERLOTINIB HYDROCHLORIDE [Suspect]
     Indication: NON-SMALL CELL LUNG CANCER
     Route: 048
     Dates: start: 20100325
  5. LABETALOL [Concomitant]
     Indication: HYPERTENSION
     Route: 048
     Dates: start: 20010101
  6. XANAX [Concomitant]
     Indication: ANXIETY
     Route: 048
     Dates: start: 20080101
  7. ERLOTINIB HYDROCHLORIDE [Suspect]
     Route: 048
     Dates: start: 20100304, end: 20100318
  8. DIOVAN [Concomitant]
     Indication: HYPERTENSION
     Route: 048
     Dates: start: 20000101
  9. IMODIUM [Concomitant]
     Route: 048

REACTIONS (1)
  - HYPOPHOSPHATAEMIA [None]
